FAERS Safety Report 7510014-0 (Version None)
Quarter: 2011Q2

REPORT INFORMATION
  Report Type: 
  Country: None (occurrence: None)
  Receive Date: 20110527
  Receipt Date: 20110516
  Transmission Date: 20111010
  Serious: Yes (Other)
  Sender: FDA-Public Use
  Company Number: US-JNJFOC-20110311725

PATIENT
  Sex: Female

DRUGS (6)
  1. STELARA [Suspect]
     Route: 058
     Dates: start: 20100406
  2. STELARA [Suspect]
     Indication: PSORIASIS
     Route: 058
     Dates: start: 20091214
  3. ALL OTHER THERAPEUTIC PRODUCT [Concomitant]
     Indication: PSORIASIS
     Route: 061
  4. STELARA [Suspect]
     Route: 058
     Dates: start: 20100111
  5. STELARA [Suspect]
     Route: 058
     Dates: start: 20100921
  6. STELARA [Suspect]
     Route: 058
     Dates: start: 20101214

REACTIONS (5)
  - SINUSITIS [None]
  - PNEUMONIA [None]
  - PHARYNGITIS STREPTOCOCCAL [None]
  - EAR INFECTION [None]
  - BRONCHITIS [None]
